FAERS Safety Report 5672112-6 (Version None)
Quarter: 2008Q1

REPORT INFORMATION
  Report Type: 
  Country: None (occurrence: None)
  Receive Date: 20080319
  Receipt Date: 20080307
  Transmission Date: 20080703
  Serious: Yes (Hospitalization)
  Sender: FDA-Public Use
  Company Number: FR-ELI_LILLY_AND_COMPANY-FR200801003068

PATIENT
  Age: 73 Year
  Sex: Female

DRUGS (5)
  1. FORTEO [Suspect]
     Indication: OSTEOPOROSIS
     Dosage: 20 UG, DAILY (1/D)
     Route: 058
     Dates: start: 20071021
  2. CORTANCYL [Concomitant]
     Indication: SJOGREN'S SYNDROME
     Dosage: 15 MG, UNKNOWN
     Route: 065
  3. COAPROVEL [Concomitant]
  4. INIPOMP [Concomitant]
     Indication: GASTRIC DISORDER
  5. CITALOPRAM HYDROBROMIDE [Concomitant]
     Indication: DEPRESSION

REACTIONS (2)
  - PAIN [None]
  - SJOGREN'S SYNDROME [None]
